FAERS Safety Report 10641708 (Version 1)
Quarter: 2014Q4

REPORT INFORMATION
  Report Type: Spontaneous
  Country: NL (occurrence: NL)
  Receive Date: 20141209
  Receipt Date: 20141209
  Transmission Date: 20150529
  Serious: Yes (Life-Threatening)
  Sender: FDA-Public Use
  Company Number: NL-PFIZER INC-2014325602

PATIENT
  Age: 62 Year
  Sex: Male
  Weight: 60 kg

DRUGS (6)
  1. CARBASALAATCALCIUM CF [Concomitant]
     Dosage: 100 MG, 1X/DAY
     Dates: start: 2014
  2. LANTUS [Concomitant]
     Active Substance: INSULIN GLARGINE
     Dosage: UNK
  3. MACROGOL [Concomitant]
     Active Substance: POLYETHYLENE GLYCOLS
     Dosage: 1 DF, 1X/DAY
  4. BUMETANIDE. [Concomitant]
     Active Substance: BUMETANIDE
     Dosage: 5 MG, 1X/DAY
     Dates: start: 201407
  5. SIMVASTATIN. [Concomitant]
     Active Substance: SIMVASTATIN
     Dosage: 40 MG, 1X/DAY
  6. LYRICA [Suspect]
     Active Substance: PREGABALIN
     Indication: PHANTOM PAIN
     Dosage: 150 MG, 2X/DAY
     Dates: start: 201410, end: 20141120

REACTIONS (5)
  - Fall [Unknown]
  - Decreased appetite [Unknown]
  - Disorientation [Unknown]
  - Confusional state [Unknown]
  - Insomnia [Not Recovered/Not Resolved]

NARRATIVE: CASE EVENT DATE: 20141106
